FAERS Safety Report 21426467 (Version 1)
Quarter: 2022Q4

REPORT INFORMATION
  Report Type: Spontaneous
  Country: US (occurrence: US)
  Receive Date: 20221008
  Receipt Date: 20221008
  Transmission Date: 20230113
  Serious: No
  Sender: FDA-Public Use
  Company Number: US-PURDUE-USA-2020-0174196

PATIENT
  Sex: Female

DRUGS (1)
  1. HYDROCODONE BITARTRATE AND ACETAMINOPHEN [Suspect]
     Active Substance: ACETAMINOPHEN\HYDROCODONE BITARTRATE
     Indication: Pain
     Dosage: 10/325
     Route: 048

REACTIONS (8)
  - Abdominal distension [Unknown]
  - Abdominal pain [Unknown]
  - Cognitive disorder [Unknown]
  - Constipation [Unknown]
  - Unevaluable event [Unknown]
  - Feeling abnormal [Unknown]
  - Therapeutic product effect decreased [Unknown]
  - Product use complaint [Unknown]
